FAERS Safety Report 15265472 (Version 1)
Quarter: 2018Q3

REPORT INFORMATION
  Report Type: Spontaneous
  Country: US (occurrence: US)
  Receive Date: 20180723
  Receipt Date: 20180723
  Transmission Date: 20181010
  Serious: Yes (Hospitalization)
  Sender: FDA-Public Use
  Company Number: None

PATIENT
  Sex: Female

DRUGS (9)
  1. OXYCODONE [Concomitant]
     Active Substance: OXYCODONE
  2. TOPIRAMATE. [Concomitant]
     Active Substance: TOPIRAMATE
  3. GLATIRAMER [Suspect]
     Active Substance: GLATIRAMER
     Indication: MULTIPLE SCLEROSIS
     Route: 058
  4. BUPRENORPHIN [Concomitant]
     Active Substance: BUPRENORPHINE
  5. GABAPENTIN. [Concomitant]
     Active Substance: GABAPENTIN
  6. METHOCARBAM [Concomitant]
     Active Substance: METHOCARBAMOL
  7. ZOLPIDEM [Concomitant]
     Active Substance: ZOLPIDEM\ZOLPIDEM TARTRATE
  8. IBUPROFEN. [Concomitant]
     Active Substance: IBUPROFEN
  9. VENLAFAXINE [Concomitant]
     Active Substance: VENLAFAXINE HYDROCHLORIDE

REACTIONS (1)
  - Shoulder arthroplasty [None]
